FAERS Safety Report 7775694-3 (Version None)
Quarter: 2011Q3

REPORT INFORMATION
  Report Type: 
  Country: None (occurrence: None)
  Receive Date: 20110923
  Receipt Date: 20110920
  Transmission Date: 20111222
  Serious: Yes (Hospitalization)
  Sender: FDA-Public Use
  Company Number: US-GLAXOSMITHKLINE-B0705575A

PATIENT
  Sex: Female
  Weight: 127.3 kg

DRUGS (11)
  1. ACCUPRIL [Concomitant]
  2. CORGARD [Concomitant]
  3. LASIX [Concomitant]
  4. NITROGLYCERIN [Concomitant]
  5. LANTUS [Concomitant]
  6. AVANDIA [Suspect]
     Indication: DIABETES MELLITUS
     Dosage: 4MG TWICE PER DAY
     Route: 048
     Dates: start: 20050701
  7. QUINAPRIL HCL [Concomitant]
  8. AVANDAMET [Suspect]
     Indication: DIABETES MELLITUS
     Route: 048
     Dates: start: 20070101, end: 20090602
  9. NORVASC [Concomitant]
  10. ADVAIR DISKUS 100/50 [Concomitant]
  11. GLIPIZIDE [Concomitant]

REACTIONS (3)
  - CEREBELLAR INFARCTION [None]
  - CARDIAC FAILURE CONGESTIVE [None]
  - MYOCARDIAL INFARCTION [None]
